FAERS Safety Report 7916082-6 (Version None)
Quarter: 2011Q4

REPORT INFORMATION
  Report Type: 
  Country: None (occurrence: None)
  Receive Date: 20111116
  Receipt Date: 20111024
  Transmission Date: 20120403
  Serious: Yes (Other)
  Sender: FDA-Public Use
  Company Number: JP-ROCHE-1007318

PATIENT

DRUGS (2)
  1. BENDAMUSTINE HYDROCHLORIDE [Suspect]
     Indication: NON-HODGKIN'S LYMPHOMA
  2. MABTHERA [Suspect]
     Indication: NON-HODGKIN'S LYMPHOMA

REACTIONS (12)
  - BLOOD LACTATE DEHYDROGENASE INCREASED [None]
  - HYPOKALAEMIA [None]
  - BLOOD IMMUNOGLOBULIN G DECREASED [None]
  - THROMBOCYTOPENIA [None]
  - HYPERURICAEMIA [None]
  - BACK PAIN [None]
  - LYMPHOPENIA [None]
  - CD4 LYMPHOCYTES DECREASED [None]
  - LEUKOPENIA [None]
  - NEUTROPENIA [None]
  - FEBRILE NEUTROPENIA [None]
  - BLOOD IMMUNOGLOBULIN A DECREASED [None]
